FAERS Safety Report 17534708 (Version 4)
Quarter: 2020Q2

REPORT INFORMATION
  Report Type: Report from Study
  Country: None (occurrence: CO)
  Receive Date: 20200312
  Receipt Date: 20200612
  Transmission Date: 20200713
  Serious: Yes (Other)
  Sender: FDA-Public Use
  Company Number: CO-ABBVIE-19K-036-2989264-00

PATIENT
  Age: 58 Year
  Sex: Female

DRUGS (3)
  1. HUMIRA [Suspect]
     Active Substance: ADALIMUMAB
     Indication: HIDRADENITIS
     Route: 058
  2. HUMIRA [Suspect]
     Active Substance: ADALIMUMAB
     Indication: HIDRADENITIS
     Route: 058
     Dates: start: 20161031
  3. TRIMETHOPRIM. [Suspect]
     Active Substance: TRIMETHOPRIM
     Indication: PRODUCT USED FOR UNKNOWN INDICATION
     Route: 065

REACTIONS (18)
  - Purulence [Not Recovered/Not Resolved]
  - Inflammation [Not Recovered/Not Resolved]
  - Renal pain [Unknown]
  - Wound haemorrhage [Unknown]
  - Abnormal behaviour [Not Recovered/Not Resolved]
  - Hepatic steatosis [Not Recovered/Not Resolved]
  - Inflammation [Not Recovered/Not Resolved]
  - Headache [Recovered/Resolved]
  - Hidradenitis [Not Recovered/Not Resolved]
  - Subcutaneous abscess [Unknown]
  - Blood creatinine abnormal [Not Recovered/Not Resolved]
  - Wound complication [Not Recovered/Not Resolved]
  - Abdominal pain [Not Recovered/Not Resolved]
  - Deformity [Unknown]
  - Drug ineffective [Unknown]
  - Pyrexia [Unknown]
  - Abdominal pain upper [Unknown]
  - Abscess [Unknown]

NARRATIVE: CASE EVENT DATE: 201909
